FAERS Safety Report 8331719-8 (Version None)
Quarter: 2012Q2

REPORT INFORMATION
  Report Type: 
  Country: None (occurrence: None)
  Receive Date: 20120502
  Receipt Date: 20111010
  Transmission Date: 20120825
  Serious: No
  Sender: FDA-Public Use
  Company Number: US-ASTRAZENECA-2011SE60776

PATIENT
  Age: 53 Year
  Sex: Female
  Weight: 65.8 kg

DRUGS (5)
  1. BENTIL [Concomitant]
  2. TRICOR [Concomitant]
  3. COZAL [Concomitant]
  4. ENTOCORT EC [Suspect]
     Route: 048
  5. PRILOSEC [Concomitant]

REACTIONS (3)
  - MALAISE [None]
  - DRUG DOSE OMISSION [None]
  - DIARRHOEA [None]
